FAERS Safety Report 6670840-7 (Version None)
Quarter: 2010Q2

REPORT INFORMATION
  Report Type: 
  Country: None (occurrence: None)
  Receive Date: 20100407
  Receipt Date: 20100331
  Transmission Date: 20101027
  Serious: Yes (Hospitalization)
  Sender: FDA-Public Use
  Company Number: US-BRISTOL-MYERS SQUIBB COMPANY-11819158

PATIENT
  Age: 84 Year
  Sex: Female
  Weight: 58 kg

DRUGS (7)
  1. COUMADIN [Suspect]
     Indication: CEREBROVASCULAR ACCIDENT
     Dosage: 2 MG ON EVEN DAYS AND 4 MG ON ODD DAYS. 12-AUG-2003 THE DOSE WAS 3 MG ON T-TH-S-S AND 2 MG ON M-W-F
     Route: 048
     Dates: start: 20020201
  2. COUMADIN [Suspect]
     Indication: ARTERIAL THERAPEUTIC PROCEDURE
     Dosage: 2 MG ON EVEN DAYS AND 4 MG ON ODD DAYS. 12-AUG-2003 THE DOSE WAS 3 MG ON T-TH-S-S AND 2 MG ON M-W-F
     Route: 048
     Dates: start: 20020201
  3. GLUCOTROL XL [Concomitant]
  4. GLUCOPHAGE [Concomitant]
  5. TAMOXIFEN CITRATE [Concomitant]
  6. DIGOXIN [Concomitant]
  7. ASPIRIN [Concomitant]

REACTIONS (13)
  - ARTERIAL THERAPEUTIC PROCEDURE [None]
  - ARTHRITIS [None]
  - ASTHENIA [None]
  - DYSARTHRIA [None]
  - EPISTAXIS [None]
  - FEELING HOT [None]
  - HEADACHE [None]
  - NAUSEA [None]
  - OEDEMA PERIPHERAL [None]
  - PAIN IN EXTREMITY [None]
  - PYREXIA [None]
  - RASH [None]
  - SWELLING [None]
